FAERS Safety Report 25405546 (Version 1)
Quarter: 2025Q2

REPORT INFORMATION
  Report Type: Spontaneous
  Country: IL (occurrence: IL)
  Receive Date: 20250606
  Receipt Date: 20250606
  Transmission Date: 20250716
  Serious: Yes (Hospitalization)
  Sender: MYLAN
  Company Number: IL-MYLANLABS-2025M1046209

PATIENT
  Age: 35 Year
  Sex: Male

DRUGS (32)
  1. FENTANYL [Suspect]
     Active Substance: FENTANYL
     Indication: Pain
  2. FENTANYL [Suspect]
     Active Substance: FENTANYL
     Indication: Snake bite
     Route: 065
  3. FENTANYL [Suspect]
     Active Substance: FENTANYL
     Route: 065
  4. FENTANYL [Suspect]
     Active Substance: FENTANYL
  5. TRAMADOL [Suspect]
     Active Substance: TRAMADOL
     Indication: Pain
  6. TRAMADOL [Suspect]
     Active Substance: TRAMADOL
     Indication: Snake bite
     Route: 065
  7. TRAMADOL [Suspect]
     Active Substance: TRAMADOL
     Route: 065
  8. TRAMADOL [Suspect]
     Active Substance: TRAMADOL
  9. METHYLPREDNISOLONE [Suspect]
     Active Substance: METHYLPREDNISOLONE
     Indication: Pain
  10. METHYLPREDNISOLONE [Suspect]
     Active Substance: METHYLPREDNISOLONE
     Indication: Snake bite
     Route: 042
  11. METHYLPREDNISOLONE [Suspect]
     Active Substance: METHYLPREDNISOLONE
     Route: 042
  12. METHYLPREDNISOLONE [Suspect]
     Active Substance: METHYLPREDNISOLONE
  13. DIPYRONE [Suspect]
     Active Substance: DIPYRONE
     Indication: Pain
  14. DIPYRONE [Suspect]
     Active Substance: DIPYRONE
     Indication: Snake bite
     Route: 065
  15. DIPYRONE [Suspect]
     Active Substance: DIPYRONE
     Route: 065
  16. DIPYRONE [Suspect]
     Active Substance: DIPYRONE
  17. MORPHINE [Suspect]
     Active Substance: MORPHINE
     Indication: Pain
  18. MORPHINE [Suspect]
     Active Substance: MORPHINE
     Indication: Snake bite
     Route: 042
  19. MORPHINE [Suspect]
     Active Substance: MORPHINE
     Route: 042
  20. MORPHINE [Suspect]
     Active Substance: MORPHINE
  21. ACETAMINOPHEN [Suspect]
     Active Substance: ACETAMINOPHEN
     Indication: Pain
  22. ACETAMINOPHEN [Suspect]
     Active Substance: ACETAMINOPHEN
     Indication: Snake bite
     Route: 042
  23. ACETAMINOPHEN [Suspect]
     Active Substance: ACETAMINOPHEN
     Route: 042
  24. ACETAMINOPHEN [Suspect]
     Active Substance: ACETAMINOPHEN
  25. KETOROLAC [Suspect]
     Active Substance: KETOROLAC TROMETHAMINE
     Indication: Pain
  26. KETOROLAC [Suspect]
     Active Substance: KETOROLAC TROMETHAMINE
     Indication: Snake bite
     Route: 065
  27. KETOROLAC [Suspect]
     Active Substance: KETOROLAC TROMETHAMINE
     Route: 065
  28. KETOROLAC [Suspect]
     Active Substance: KETOROLAC TROMETHAMINE
  29. KETAMINE [Concomitant]
     Active Substance: KETAMINE
     Indication: Pain
  30. KETAMINE [Concomitant]
     Active Substance: KETAMINE
     Indication: Snake bite
     Route: 042
  31. KETAMINE [Concomitant]
     Active Substance: KETAMINE
     Route: 042
  32. KETAMINE [Concomitant]
     Active Substance: KETAMINE

REACTIONS (1)
  - Drug ineffective [Unknown]
